FAERS Safety Report 24247489 (Version 1)
Quarter: 2024Q3

REPORT INFORMATION
  Report Type: Spontaneous
  Country: US (occurrence: US)
  Receive Date: 20240826
  Receipt Date: 20240826
  Transmission Date: 20241016
  Serious: No
  Sender: ROCHE
  Company Number: US-ROCHE-10000060951

PATIENT
  Sex: Female

DRUGS (1)
  1. LUNSUMIO [Suspect]
     Active Substance: MOSUNETUZUMAB-AXGB
     Indication: Mantle cell lymphoma
     Dosage: DOSAGE HAS BEEN INCREASE BY DAY ON 1ST DOSE IT WAS 1 MG, ON SECOND DAY IT WAS 2 MG.
     Route: 042

REACTIONS (4)
  - Off label use [Unknown]
  - Headache [Recovered/Resolved]
  - Nausea [Recovered/Resolved]
  - Vomiting [Recovered/Resolved]
